FAERS Safety Report 8634606 (Version 2)
Quarter: 2012Q4

REPORT INFORMATION
  Report Type: 
  Country: US (occurrence: US)
  Receive Date: 20120626
  Receipt Date: 20121126
  Transmission Date: 20130627
  Serious: Yes (Hospitalization)
  Sender: FDA-Public Use
  Company Number: US-BAYER-2012-061840

PATIENT
  Age: 26 Year
  Sex: Female
  Weight: 72.56 kg

DRUGS (8)
  1. YAZ [Suspect]
     Indication: BIRTH CONTROL
  2. YAZ [Suspect]
     Indication: HORMONAL IMBALANCE
  3. YASMIN [Suspect]
     Indication: BIRTH CONTROL
  4. YASMIN [Suspect]
     Indication: HORMONAL IMBALANCE
  5. GABITRIL [Concomitant]
     Dosage: 4 mg, BID
  6. ZOLOFT [Concomitant]
  7. LEVOTHYROXINE [Concomitant]
  8. XANAX [Concomitant]

REACTIONS (10)
  - Cholelithiasis [None]
  - Depression [None]
  - Alopecia [None]
  - Anxiety [None]
  - Gallbladder injury [None]
  - Injury [None]
  - Emotional distress [None]
  - Psychological trauma [None]
  - Abdominal pain [None]
  - Anxiety [None]
